FAERS Safety Report 10391598 (Version 5)
Quarter: 2016Q1

REPORT INFORMATION
  Report Type: Spontaneous
  Country: US (occurrence: US)
  Receive Date: 20140818
  Receipt Date: 20160222
  Transmission Date: 20160525
  Serious: Yes (Hospitalization, Disabling, Other)
  Sender: FDA-Public Use
  Company Number: US-009507513-1408USA005681

PATIENT
  Sex: Female
  Weight: 100.32 kg

DRUGS (6)
  1. FOSAMAX [Suspect]
     Active Substance: ALENDRONATE SODIUM
     Indication: OSTEOPOROSIS POSTMENOPAUSAL
     Dosage: 70 MG, QW
     Route: 048
     Dates: start: 200102, end: 200602
  2. FOSAMAX [Suspect]
     Active Substance: ALENDRONATE SODIUM
     Dosage: 35 MG, UNKNOWN
     Route: 048
     Dates: start: 20040330, end: 20050124
  3. FOSAMAX PLUS D [Suspect]
     Active Substance: ALENDRONATE SODIUM\CHOLECALCIFEROL
     Indication: OSTEOPOROSIS POSTMENOPAUSAL
     Dosage: 70 MG, QW
     Route: 048
     Dates: start: 20060628, end: 200911
  4. ALENDRONATE SODIUM. [Suspect]
     Active Substance: ALENDRONATE SODIUM
     Indication: OSTEOPOROSIS POSTMENOPAUSAL
     Dosage: 70 MG, QW
     Route: 048
     Dates: start: 20091124, end: 201107
  5. SYNTHROID [Concomitant]
     Active Substance: LEVOTHYROXINE SODIUM
     Indication: HYPOTHYROIDISM
     Dosage: UNK
     Dates: start: 1999
  6. FOSAMAX [Suspect]
     Active Substance: ALENDRONATE SODIUM
     Dosage: 10 MG, UNKNOWN
     Route: 048
     Dates: start: 20000425, end: 20011117

REACTIONS (14)
  - Intervertebral disc degeneration [Unknown]
  - Foot fracture [Unknown]
  - Ankle fracture [Unknown]
  - Depression [Unknown]
  - Hypertension [Unknown]
  - Back disorder [Unknown]
  - Hip fracture [Recovered/Resolved]
  - Type 2 diabetes mellitus [Unknown]
  - Head injury [Unknown]
  - Haemorrhagic anaemia [Unknown]
  - Urinary tract infection [Unknown]
  - Hand fracture [Unknown]
  - Foot fracture [Unknown]
  - Scoliosis [Unknown]

NARRATIVE: CASE EVENT DATE: 2006
